FAERS Safety Report 9709238 (Version 2)
Quarter: 2013Q4

REPORT INFORMATION
  Report Type: Spontaneous
  Country: CA (occurrence: CA)
  Receive Date: 20131125
  Receipt Date: 20131125
  Transmission Date: 20140711
  Serious: Yes (Hospitalization)
  Sender: FDA-Public Use
  Company Number: CA-BAXTER-2013BAX045470

PATIENT
  Age: 69 Year
  Sex: Female

DRUGS (3)
  1. DIANEAL PD4 SOLUTION WITH 1.5% DEXTROSE AND 2.5 MEQ/L CALCIUM [Suspect]
     Indication: PERITONEAL DIALYSIS
     Dosage: 2 BAGS OF 5L
     Route: 033
     Dates: start: 20120814
  2. DIANEAL PD4 SOLUTION WITH 1.5% DEXTROSE AND 2.5 MEQ/L CALCIUM [Suspect]
     Dosage: 1 BAGS OF 3L
     Route: 033
     Dates: start: 20130814
  3. EXTRANEAL [Suspect]
     Indication: PERITONEAL DIALYSIS
     Route: 033
     Dates: start: 20120814

REACTIONS (3)
  - Platelet count decreased [Recovering/Resolving]
  - Dyspnoea [Recovering/Resolving]
  - Peritoneal dialysis complication [Not Recovered/Not Resolved]
